FAERS Safety Report 6166542-6 (Version None)
Quarter: 2009Q2

REPORT INFORMATION
  Report Type: 
  Country: None (occurrence: None)
  Receive Date: 20090424
  Receipt Date: 20090413
  Transmission Date: 20091009
  Serious: Yes (Other)
  Sender: FDA-Public Use
  Company Number: US-ROCHE-627062

PATIENT
  Age: 8 Month
  Sex: Male

DRUGS (17)
  1. MYCOPHENOLATE MOFETIL [Suspect]
     Route: 048
  2. GANCICLOVIR [Suspect]
     Indication: INFECTION PROPHYLAXIS
     Route: 042
  3. SULFAMETHOXAZOLE AND TRIMETHOPRIM [Suspect]
     Indication: INFECTION PROPHYLAXIS
     Route: 048
  4. TACROLIMUS [Suspect]
     Indication: IMMUNOSUPPRESSION
     Dosage: PREOPERATIVELY.
     Route: 060
  5. TACROLIMUS [Suspect]
     Route: 060
  6. AZATHIOPRINE [Suspect]
     Indication: IMMUNOSUPPRESSION
     Dosage: PREOPERATIVELY.
     Route: 042
  7. AZATHIOPRINE [Suspect]
     Dosage: FOR THE  FIRST THREE DAYS.
     Route: 042
  8. CYTOMEGALOVIRUS IMMUNE GLOBULIN [Suspect]
     Indication: INFECTION PROPHYLAXIS
     Dosage: GIVEN ON DAYS 1 AND 14.
     Route: 042
  9. TOBRAMYCIN [Suspect]
     Indication: INFECTION PROPHYLAXIS
     Dosage: AEROSOLYZED TOBRAMYCIN.
     Route: 065
  10. AMPHOTERICIN B [Suspect]
     Indication: INFECTION PROPHYLAXIS
     Dosage: LIPOSOMAL AMPHOTERICIN.
     Route: 065
  11. METHYLPREDNISOLONE 4MG TAB [Suspect]
     Indication: IMMUNOSUPPRESSION
     Dosage: INTRAOPERATIVELY.
     Route: 042
  12. METHYLPREDNISOLONE 4MG TAB [Suspect]
     Dosage: FOR THE FIRST THREE DAYS.
     Route: 042
  13. PREDNISOLONE [Suspect]
     Indication: IMMUNOSUPPRESSION
     Route: 048
  14. VANCOMYCIN HCL [Suspect]
     Indication: INFECTION PROPHYLAXIS
     Route: 042
  15. VANCOMYCIN HCL [Suspect]
     Route: 042
  16. ITRACONAZOLE [Suspect]
     Indication: INFECTION PROPHYLAXIS
     Route: 048
  17. CEFEPIME [Suspect]
     Indication: INFECTION PROPHYLAXIS
     Route: 042

REACTIONS (2)
  - PULMONARY VASCULITIS [None]
  - TRANSPLANT REJECTION [None]
